FAERS Safety Report 17152342 (Version 1)
Quarter: 2019Q4

REPORT INFORMATION
  Report Type: Spontaneous
  Country: GB (occurrence: GB)
  Receive Date: 20191213
  Receipt Date: 20191213
  Transmission Date: 20200122
  Serious: Yes (Hospitalization)
  Sender: FDA-Public Use
  Company Number: GB-PUMA BIOTECHNOLOGY, LTD.-2019GB011969

PATIENT

DRUGS (1)
  1. NERLYNX [Suspect]
     Active Substance: NERATINIB
     Indication: METASTASES TO BONE
     Dosage: 40 MG
     Route: 048
     Dates: start: 20190919

REACTIONS (5)
  - Anaemia [Not Recovered/Not Resolved]
  - Product use issue [Unknown]
  - Diarrhoea [Recovered/Resolved]
  - Product use in unapproved indication [Unknown]
  - Off label use [Unknown]

NARRATIVE: CASE EVENT DATE: 20190919
